FAERS Safety Report 9283564 (Version 2)
Quarter: 2013Q2

REPORT INFORMATION
  Report Type: Report from Study
  Country: CA (occurrence: CA)
  Receive Date: 20130510
  Receipt Date: 20130611
  Transmission Date: 20140414
  Serious: Yes (Hospitalization, Other)
  Sender: FDA-Public Use
  Company Number: PHHY2013CA034551

PATIENT
  Age: 78 Year
  Sex: Female

DRUGS (15)
  1. EXJADE [Suspect]
     Indication: MYELODYSPLASTIC SYNDROME
     Dosage: 1000 MG, QD
     Route: 048
     Dates: start: 20130302
  2. EXJADE [Suspect]
     Dosage: 1500 MG, QD
     Route: 048
  3. EXJADE [Suspect]
     Dosage: 1000 MG, QD
     Route: 048
     Dates: start: 20130424, end: 20130426
  4. EXJADE [Suspect]
     Dosage: 1000-1500 MG, QD
     Route: 048
     Dates: start: 20130302, end: 20130426
  5. MICRO K [Concomitant]
  6. SPIRIVA [Concomitant]
  7. TEMAZEPAM [Concomitant]
  8. ADVAIR [Concomitant]
  9. IPRATROPIUM [Concomitant]
  10. OSTEO D//COLECALCIFEROL [Concomitant]
     Dosage: 50000 DF, (UNITS PER WEEK)
  11. VIT-C [Concomitant]
  12. ARIMIDEX [Concomitant]
  13. OLMETEC [Concomitant]
     Dosage: 20 MG, UNK
  14. CO ETIDROCAL [Concomitant]
  15. VITALUX PLUS LUTEIN OMEGA 3 [Concomitant]

REACTIONS (10)
  - Intestinal obstruction [Unknown]
  - Intervertebral disc degeneration [Recovering/Resolving]
  - Constipation [Not Recovered/Not Resolved]
  - Bowel movement irregularity [Unknown]
  - Back pain [Recovering/Resolving]
  - Cystitis [Unknown]
  - Postoperative adhesion [Unknown]
  - Scar [Unknown]
  - Gastrointestinal disorder [Unknown]
  - Abdominal distension [Unknown]
